FAERS Safety Report 14392386 (Version 1)
Quarter: 2018Q1

REPORT INFORMATION
  Report Type: Report from Study
  Country: IT (occurrence: IT)
  Receive Date: 20180116
  Receipt Date: 20180116
  Transmission Date: 20180509
  Serious: No
  Sender: FDA-Public Use
  Company Number: IT-BIOVERATIV-2017BV000364

PATIENT
  Age: 9 Year
  Sex: Male

DRUGS (1)
  1. ELOCTA [Suspect]
     Active Substance: EFMOROCTOCOG ALFA
     Indication: HAEMOPHILIA
     Dosage: 1500 (UNKNOWN UNIT) EACH DAY FOR 3 CONSECUTIVE DAYS
     Route: 042
     Dates: start: 20171007

REACTIONS (1)
  - Inappropriate schedule of drug administration [Unknown]

NARRATIVE: CASE EVENT DATE: 20171008
